FAERS Safety Report 8503473-8 (Version None)
Quarter: 2012Q3

REPORT INFORMATION
  Report Type: 
  Country: None (occurrence: None)
  Receive Date: 20120711
  Receipt Date: 20120702
  Transmission Date: 20120928
  Serious: Yes (Hospitalization)
  Sender: FDA-Public Use
  Company Number: US-GLAXOSMITHKLINE-A0983826A

PATIENT
  Age: 81 Year
  Sex: Male

DRUGS (2)
  1. STEROIDS [Suspect]
     Indication: PRODUCT USED FOR UNKNOWN INDICATION
     Route: 065
  2. ADVAIR DISKUS 100/50 [Suspect]
     Indication: PRODUCT USED FOR UNKNOWN INDICATION
     Route: 055
     Dates: start: 20110829

REACTIONS (4)
  - EYE DISORDER [None]
  - VISUAL IMPAIRMENT [None]
  - PNEUMONIA [None]
  - CARDIAC DISORDER [None]
